FAERS Safety Report 9271630 (Version 1)
Quarter: 2013Q2

REPORT INFORMATION
  Report Type: Spontaneous
  Country: CN (occurrence: CN)
  Receive Date: 20130506
  Receipt Date: 20130506
  Transmission Date: 20140414
  Serious: Yes (Hospitalization, Other)
  Sender: FDA-Public Use
  Company Number: CN-ASTELLAS-2013JP005607

PATIENT
  Age: 28 Year
  Sex: Female

DRUGS (5)
  1. TACROLIMUS [Suspect]
     Indication: STEM CELL TRANSPLANT
     Dosage: 3 MG, BID
     Route: 065
  2. TACROLIMUS [Suspect]
     Indication: STEM CELL TRANSPLANT
     Dosage: 1.3 MG, UNKNOWN/D
     Route: 042
  3. TACROLIMUS [Suspect]
     Route: 042
  4. METHYLPREDNISOLONE [Concomitant]
     Indication: STEM CELL TRANSPLANT
     Route: 065
  5. CYCLOSPORIN A [Concomitant]
     Indication: STEM CELL TRANSPLANT
     Route: 065

REACTIONS (2)
  - Abnormal faeces [Unknown]
  - Epilepsy [Recovered/Resolved]
